FAERS Safety Report 25870974 (Version 2)
Quarter: 2025Q4

REPORT INFORMATION
  Report Type: Spontaneous
  Country: JP (occurrence: JP)
  Receive Date: 20251001
  Receipt Date: 20251006
  Transmission Date: 20260118
  Serious: Yes (Hospitalization)
  Sender: EISAI
  Company Number: JP-Eisai-202508062_LEN-EC_P_1

PATIENT
  Sex: Female

DRUGS (3)
  1. LENVATINIB [Suspect]
     Active Substance: LENVATINIB
     Indication: Endometrial cancer recurrent
     Route: 048
  2. LENVATINIB [Suspect]
     Active Substance: LENVATINIB
     Route: 048
  3. PEMBROLIZUMAB [Concomitant]
     Active Substance: PEMBROLIZUMAB
     Indication: Endometrial cancer recurrent
     Route: 041

REACTIONS (7)
  - Immune-mediated hypothyroidism [Recovered/Resolved]
  - Immune-mediated adrenal insufficiency [Recovering/Resolving]
  - Malaise [Unknown]
  - Hypertension [Unknown]
  - Nausea [Unknown]
  - Decreased appetite [Unknown]
  - Weight decreased [Unknown]
